FAERS Safety Report 6434712-5 (Version None)
Quarter: 2009Q4

REPORT INFORMATION
  Report Type: 
  Country: None (occurrence: None)
  Receive Date: 20091110
  Receipt Date: 20091030
  Transmission Date: 20100525
  Serious: Yes (Hospitalization)
  Sender: FDA-Public Use
  Company Number: GXKR2009IT11995

PATIENT
  Sex: Male

DRUGS (1)
  1. RAMIPRIL (NGX) [Suspect]
     Route: 065

REACTIONS (2)
  - HEART RATE INCREASED [None]
  - HYPOTENSION [None]
